FAERS Safety Report 11804430 (Version 1)
Quarter: 2015Q4

REPORT INFORMATION
  Report Type: Spontaneous
  Country: US (occurrence: US)
  Receive Date: 20151204
  Receipt Date: 20151204
  Transmission Date: 20160305
  Serious: No
  Sender: FDA-Public Use
  Company Number: US-BAUSCH-BL-2014-010676

PATIENT
  Age: 41 Year
  Sex: Female

DRUGS (2)
  1. XENAZINE [Suspect]
     Active Substance: TETRABENAZINE
     Indication: HUNTINGTON^S DISEASE
     Route: 048
     Dates: start: 20141108, end: 20141122
  2. CITALOPRAM [Suspect]
     Active Substance: CITALOPRAM HYDROBROMIDE
     Indication: PRODUCT USED FOR UNKNOWN INDICATION

REACTIONS (9)
  - Anger [Recovered/Resolved]
  - Disturbance in attention [Recovered/Resolved]
  - Dyskinesia [Recovered/Resolved]
  - Contusion [Recovered/Resolved]
  - Irritability [Recovered/Resolved]
  - Injury [Recovered/Resolved]
  - Aggression [Recovered/Resolved]
  - Fall [Recovering/Resolving]
  - Fatigue [Recovered/Resolved]

NARRATIVE: CASE EVENT DATE: 201411
